FAERS Safety Report 7149268-1 (Version None)
Quarter: 2010Q4

REPORT INFORMATION
  Report Type: 
  Country: None (occurrence: None)
  Receive Date: 20101209
  Receipt Date: 20101206
  Transmission Date: 20110411
  Serious: Yes (Hospitalization)
  Sender: FDA-Public Use
  Company Number: IT-PFIZER INC-2010165763

PATIENT
  Age: 66 Year
  Sex: Male

DRUGS (5)
  1. TYGACIL [Suspect]
     Indication: PNEUMONIA
     Dosage: 100 MG, 1X/DAY
     Route: 042
     Dates: start: 20101115, end: 20101126
  2. DIFLUCAN [Suspect]
     Indication: PNEUMONIA
     Dosage: 200 MG, 1X/DAY
     Route: 048
     Dates: start: 20101115, end: 20101116
  3. BACTRIM [Suspect]
     Indication: PNEUMONIA
     Dosage: 3 DF, 1X/DAY
     Route: 048
     Dates: start: 20101115, end: 20101116
  4. FRAGMIN [Concomitant]
  5. ALLOPURINOL [Concomitant]

REACTIONS (1)
  - HYPONATRAEMIA [None]
